FAERS Safety Report 5897355-8 (Version None)
Quarter: 2008Q3

REPORT INFORMATION
  Report Type: 
  Country: None (occurrence: None)
  Receive Date: 20080925
  Receipt Date: 20080710
  Transmission Date: 20090109
  Serious: No
  Sender: FDA-Public Use
  Company Number: A0736979A

PATIENT
  Age: 53 Year
  Sex: Male

DRUGS (7)
  1. EPZICOM [Suspect]
     Indication: HIV INFECTION
     Dosage: 300MG PER DAY
     Route: 048
     Dates: start: 20080621
  2. COMBIVIR [Concomitant]
  3. DIABETES MEDICATION [Concomitant]
  4. LEXAPRO [Concomitant]
  5. SLEEPING MEDICATION [Concomitant]
  6. ANTI-CHOLESTEROL MEDICATION [Concomitant]
  7. BLOOD PRESSURE MEDICATION [Concomitant]

REACTIONS (4)
  - FATIGUE [None]
  - LARYNGITIS [None]
  - PYREXIA [None]
  - SINUS OPERATION [None]
